FAERS Safety Report 16446697 (Version 2)
Quarter: 2020Q4

REPORT INFORMATION
  Report Type: Spontaneous
  Country: GB (occurrence: GB)
  Receive Date: 20190618
  Receipt Date: 20201015
  Transmission Date: 20210113
  Serious: Yes (Other)
  Sender: FDA-Public Use
  Company Number: PHHY2019GB138439

PATIENT

DRUGS (1)
  1. KYMRIAH [Suspect]
     Active Substance: TISAGENLECLEUCEL
     Indication: PRODUCT USED FOR UNKNOWN INDICATION
     Dosage: UNK
     Route: 065

REACTIONS (10)
  - Breast swelling [Unknown]
  - Guillain-Barre syndrome [Unknown]
  - Lymphadenopathy [Unknown]
  - Pyrexia [Unknown]
  - Disorientation [Unknown]
  - Hypotension [Unknown]
  - Fatigue [Unknown]
  - Quadriparesis [Unknown]
  - Immune effector cell-associated neurotoxicity syndrome [Unknown]
  - Asthenia [Unknown]
